FAERS Safety Report 10973446 (Version 1)
Quarter: 2015Q1

REPORT INFORMATION
  Report Type: Spontaneous
  Country: None (occurrence: None)
  Receive Date: 20150331
  Receipt Date: 20150331
  Transmission Date: 20150721
  Serious: Yes (Disabling)
  Sender: FDA-Public Use
  Company Number: None

PATIENT
  Age: 74 Year
  Sex: Female
  Weight: 70.31 kg

DRUGS (10)
  1. AMLODIPINE [Concomitant]
     Active Substance: AMLODIPINE BESYLATE
  2. VIT. C [Concomitant]
  3. BENICAR [Suspect]
     Active Substance: OLMESARTAN MEDOXOMIL
     Indication: HYPERTENSION
     Route: 048
     Dates: start: 20091231, end: 20150330
  4. HYDROCHLOROTHIAZID [Concomitant]
     Active Substance: HYDROCHLOROTHIAZIDE
  5. BENICAR [Suspect]
     Active Substance: OLMESARTAN MEDOXOMIL
     Indication: HYPERLIPIDAEMIA
     Route: 048
     Dates: start: 20091231, end: 20150330
  6. FISH OIL [Concomitant]
     Active Substance: FISH OIL
  7. CLONIDINE HCL [Concomitant]
     Active Substance: CLONIDINE HYDROCHLORIDE
  8. LIPITOR [Suspect]
     Active Substance: ATORVASTATIN CALCIUM
     Indication: BLOOD CHOLESTEROL
     Route: 048
  9. CALCIUM [Concomitant]
     Active Substance: CALCIUM
  10. VIT. D, FOLIC ACID, VIT. B - COMPLEX [Concomitant]
     Active Substance: FOLIC ACID\VITAMINS

REACTIONS (4)
  - Lymphadenopathy [None]
  - Transient ischaemic attack [None]
  - Thyroid neoplasm [None]
  - Neck mass [None]

NARRATIVE: CASE EVENT DATE: 20150330
